FAERS Safety Report 5499374-2 (Version None)
Quarter: 2007Q4

REPORT INFORMATION
  Report Type: 
  Country: None (occurrence: None)
  Receive Date: 20071026
  Receipt Date: 20071024
  Transmission Date: 20080405
  Serious: Yes (Hospitalization)
  Sender: FDA-Public Use
  Company Number: A0689555A

PATIENT
  Age: 90 Year
  Sex: Male

DRUGS (11)
  1. ADVAIR DISKUS 100/50 [Suspect]
     Indication: CHRONIC OBSTRUCTIVE PULMONARY DISEASE
     Dosage: 1PUFF TWICE PER DAY
     Route: 055
     Dates: start: 20071019
  2. TOPROL-XL [Concomitant]
  3. LISINOPRIL [Concomitant]
  4. NORVASC [Concomitant]
  5. CASODEX [Concomitant]
  6. XELODA [Concomitant]
  7. SPIRIVA [Concomitant]
  8. DOXYCYCLINE [Concomitant]
  9. ASPIRIN [Concomitant]
  10. GLUCOSAMINE + CHONDROITIN [Concomitant]
  11. METAMUCIL [Concomitant]

REACTIONS (2)
  - DYSPNOEA [None]
  - PHARMACEUTICAL PRODUCT COMPLAINT [None]
